FAERS Safety Report 5126523-8 (Version None)
Quarter: 2006Q4

REPORT INFORMATION
  Report Type: 
  Country: None (occurrence: None)
  Receive Date: 20061010
  Receipt Date: 20060927
  Transmission Date: 20070319
  Serious: Yes (Other)
  Sender: FDA-Public Use
  Company Number: 2006118590

PATIENT
  Age: 31 Year
  Sex: Female

DRUGS (10)
  1. CHANTIX [Suspect]
     Indication: SMOKING CESSATION THERAPY
     Dosage: 1/2 TABLET (2 IN 1 D)
     Dates: start: 20060921
  2. HYDROCHLOROTHIAZIDE [Concomitant]
  3. LISINOPRIL [Concomitant]
  4. LYRICA [Concomitant]
  5. EFFEXOR [Concomitant]
  6. CIMETIDINE [Concomitant]
  7. LITHIUM CARBONATE [Concomitant]
  8. SEROQUEL [Concomitant]
  9. ABILIFY [Concomitant]
  10. XANAX [Concomitant]

REACTIONS (5)
  - DIABETES MELLITUS [None]
  - FIBROMYALGIA [None]
  - HYPERTENSION [None]
  - OLIGOMENORRHOEA [None]
  - RECTAL HAEMORRHAGE [None]
